FAERS Safety Report 7764780-X (Version None)
Quarter: 2011Q3

REPORT INFORMATION
  Report Type: 
  Country: None (occurrence: None)
  Receive Date: 20110921
  Receipt Date: 20110921
  Transmission Date: 20111222
  Serious: Yes (Hospitalization)
  Sender: FDA-Public Use
  Company Number: None

PATIENT
  Sex: Male
  Weight: 61.2 kg

DRUGS (1)
  1. VANCOMYCIN [Suspect]
     Indication: STAPHYLOCOCCAL INFECTION
     Dosage: 750 MG
     Route: 042

REACTIONS (2)
  - BLOOD CREATININE INCREASED [None]
  - NEPHROPATHY TOXIC [None]
